FAERS Safety Report 13537214 (Version 2)
Quarter: 2017Q3

REPORT INFORMATION
  Report Type: Spontaneous
  Country: US (occurrence: US)
  Receive Date: 20170511
  Receipt Date: 20170714
  Transmission Date: 20171127
  Serious: Yes (Hospitalization, Other)
  Sender: FDA-Public Use
  Company Number: US-GLAXOSMITHKLINE-US2017GSK066939

PATIENT
  Age: 51 Year
  Sex: Male

DRUGS (6)
  1. ADVAIR DISKUS [Suspect]
     Active Substance: FLUTICASONE PROPIONATE\SALMETEROL XINAFOATE
     Indication: ASTHMA
  2. METOPROLOL. [Suspect]
     Active Substance: METOPROLOL
  3. ADVAIR DISKUS [Suspect]
     Active Substance: FLUTICASONE PROPIONATE\SALMETEROL XINAFOATE
     Indication: CHRONIC OBSTRUCTIVE PULMONARY DISEASE
     Dosage: UNK, BID
     Dates: start: 2013
  4. VENTOLIN HFA [Suspect]
     Active Substance: ALBUTEROL SULFATE
     Indication: CHRONIC OBSTRUCTIVE PULMONARY DISEASE
  5. ADVAIR DISKUS [Suspect]
     Active Substance: FLUTICASONE PROPIONATE\SALMETEROL XINAFOATE
     Indication: DYSPNOEA
  6. SPIRIVA [Concomitant]
     Active Substance: TIOTROPIUM BROMIDE MONOHYDRATE

REACTIONS (11)
  - Limb operation [Unknown]
  - Gangrene [Unknown]
  - Drug ineffective [Unknown]
  - Myocardial infarction [Unknown]
  - Cardiopulmonary failure [Unknown]
  - Surgery [Unknown]
  - Hospitalisation [Unknown]
  - Toe amputation [Unknown]
  - Thrombosis [Unknown]
  - Drug dose omission [Unknown]
  - Chest pain [Unknown]

NARRATIVE: CASE EVENT DATE: 201305
